FAERS Safety Report 13498526 (Version 2)
Quarter: 2019Q1

REPORT INFORMATION
  Report Type: Report from Study
  Country: US (occurrence: US)
  Receive Date: 20170501
  Receipt Date: 20190103
  Transmission Date: 20190417
  Serious: Yes (Other)
  Sender: FDA-Public Use
  Company Number: US-ROCHE-1926055

PATIENT

DRUGS (5)
  1. ETOPOSIDE. [Suspect]
     Active Substance: ETOPOSIDE
     Indication: NON-HODGKIN^S LYMPHOMA
     Route: 065
  2. CARBOPLATIN. [Suspect]
     Active Substance: CARBOPLATIN
     Indication: NON-HODGKIN^S LYMPHOMA
     Route: 065
  3. BORTEZOMIB. [Suspect]
     Active Substance: BORTEZOMIB
     Indication: NON-HODGKIN^S LYMPHOMA
     Dosage: ON DAY 1 AND 8 OF EACH CYCLE
     Route: 042
  4. IFOSFAMIDE. [Suspect]
     Active Substance: IFOSFAMIDE
     Indication: NON-HODGKIN^S LYMPHOMA
     Route: 065
  5. RITUXIMAB. [Suspect]
     Active Substance: RITUXIMAB
     Indication: NON-HODGKIN^S LYMPHOMA
     Dosage: DAY 8 OF CYCLE 1 (28-DAY CYCLE); DAY 1 OF ALL SUBSEQUENT CYCLES (21-DAY CYCLE)
     Route: 042

REACTIONS (18)
  - Febrile neutropenia [Unknown]
  - Cytopenia [Unknown]
  - Hypokalaemia [Unknown]
  - Hypotension [Unknown]
  - Lymphopenia [Unknown]
  - Hyponatraemia [Unknown]
  - Thrombocytopenia [Unknown]
  - Anaemia [Unknown]
  - Hypophosphataemia [Unknown]
  - Neuralgia [Unknown]
  - Abdominal pain [Unknown]
  - Seizure [Unknown]
  - Leukopenia [Unknown]
  - Neutropenia [Unknown]
  - Dyspnoea [Unknown]
  - Syncope [Unknown]
  - Diarrhoea [Unknown]
  - Fatigue [Unknown]
